FAERS Safety Report 20577075 (Version 1)
Quarter: 2022Q1

REPORT INFORMATION
  Report Type: Spontaneous
  Country: US (occurrence: US)
  Receive Date: 20220310
  Receipt Date: 20220310
  Transmission Date: 20220424
  Serious: Yes (Other)
  Sender: FDA-Public Use
  Company Number: US-CELGENE-USA-20220302726

PATIENT
  Sex: Male
  Weight: 10.896 kg

DRUGS (1)
  1. THALOMID [Suspect]
     Active Substance: THALIDOMIDE
     Indication: Gastrointestinal arteriovenous malformation
     Dosage: 50 MILLIGRAM
     Route: 048
     Dates: start: 202107

REACTIONS (3)
  - Full blood count decreased [Unknown]
  - Diarrhoea [Unknown]
  - Fluid retention [Unknown]
